FAERS Safety Report 9186660 (Version 1)
Quarter: 2013Q1

REPORT INFORMATION
  Report Type: Spontaneous
  Country: US (occurrence: US)
  Receive Date: 20130325
  Receipt Date: 20130325
  Transmission Date: 20140127
  Serious: No
  Sender: FDA-Public Use
  Company Number: US-GLAXOSMITHKLINE-A0958327A

PATIENT
  Age: 62 Year
  Sex: Female

DRUGS (1)
  1. RYTHMOL SR [Suspect]
     Dosage: 425MG UNKNOWN
     Route: 065
     Dates: start: 20080613

REACTIONS (1)
  - Heart rate abnormal [Unknown]
